FAERS Safety Report 5018216-2 (Version None)
Quarter: 2006Q2

REPORT INFORMATION
  Report Type: 
  Country: None (occurrence: None)
  Receive Date: 20060530
  Receipt Date: 20060516
  Transmission Date: 20061013
  Serious: Yes (Death, Other)
  Sender: FDA-Public Use
  Company Number: 2006064688

PATIENT
  Age: 56 Year
  Sex: Male
  Weight: 48 kg

DRUGS (5)
  1. SUTENT [Suspect]
     Indication: METASTATIC RENAL CELL CARCINOMA
     Dosage: SEE IMAGE
     Route: 048
     Dates: start: 20060214, end: 20060313
  2. SUTENT [Suspect]
     Indication: METASTATIC RENAL CELL CARCINOMA
     Dosage: SEE IMAGE
     Route: 048
     Dates: start: 20060424, end: 20060511
  3. METOCLOPRAMIDE [Concomitant]
  4. DEXAMETHASONE TAB [Concomitant]
  5. MEDICON A (DEXTROMETHORPHAN HYDROBROMIDE, LYSOZYME HYDROCHLORIDE, POTA [Concomitant]

REACTIONS (9)
  - CHILLS [None]
  - DISEASE PROGRESSION [None]
  - DISSEMINATED INTRAVASCULAR COAGULATION [None]
  - GENERAL PHYSICAL HEALTH DETERIORATION [None]
  - HAEMOGLOBIN DECREASED [None]
  - JAUNDICE [None]
  - NEUTROPENIA [None]
  - RESPIRATORY FAILURE [None]
  - THROMBOCYTOPENIA [None]
